FAERS Safety Report 8229557-X (Version None)
Quarter: 2012Q1

REPORT INFORMATION
  Report Type: 
  Country: None (occurrence: None)
  Receive Date: 20120322
  Receipt Date: 20120319
  Transmission Date: 20120608
  Serious: Yes (Other)
  Sender: FDA-Public Use
  Company Number: US-ELI_LILLY_AND_COMPANY-US201110004528

PATIENT
  Sex: Male
  Weight: 102.4 kg

DRUGS (11)
  1. BYETTA [Suspect]
     Dosage: 10 UG, QD
     Dates: start: 20080404, end: 20080611
  2. PREVACID [Concomitant]
     Dosage: 30 MG, PRN
     Route: 048
  3. BYETTA [Suspect]
     Indication: DIABETES MELLITUS
     Dosage: 5 UG, QD
     Route: 058
     Dates: start: 20080228
  4. GLIPIZIDE [Concomitant]
     Dosage: 5 MG, BID
     Route: 048
  5. GLUCOPHAGE [Concomitant]
     Dosage: 1000 MG, BID
     Route: 048
  6. ASPIRIN [Concomitant]
     Dosage: 325 MG, QD
     Route: 048
  7. LOPID [Concomitant]
     Dosage: 600 MG, QD
     Route: 048
  8. TRAZODONE HCL [Concomitant]
     Dosage: 100 MG, PRN
  9. TOPROL-XL [Concomitant]
     Dosage: 50 MG, QD
  10. DIGOXIN [Concomitant]
     Dosage: .25 MG, QD
     Route: 048
  11. LISINOPRIL [Concomitant]
     Dosage: 2.5 MG, QD
     Route: 048

REACTIONS (1)
  - PANCREATITIS [None]
